FAERS Safety Report 7777242-0 (Version None)
Quarter: 2011Q3

REPORT INFORMATION
  Report Type: 
  Country: None (occurrence: None)
  Receive Date: 20110926
  Receipt Date: 20110911
  Transmission Date: 20111222
  Serious: Yes (Hospitalization)
  Sender: FDA-Public Use
  Company Number: PHHY2011BR81338

PATIENT
  Age: 49 Year
  Sex: Female

DRUGS (4)
  1. IG [Concomitant]
     Dosage: 0.4 G/KG
  2. MYCOPHENOLATE MOFETIL [Suspect]
     Indication: RENAL TRANSPLANT
     Dosage: UNK UKN, UNK
  3. TACROLIMUS [Concomitant]
     Indication: RENAL TRANSPLANT
     Dosage: UNK UKN, UNK
  4. PREDNISONE [Concomitant]
     Dosage: UNK UKN, UNK

REACTIONS (6)
  - KIDNEY TRANSPLANT REJECTION [None]
  - GLOMERULONEPHRITIS [None]
  - TUBULOINTERSTITIAL NEPHRITIS [None]
  - BLOOD CREATININE INCREASED [None]
  - HISTOLOGY ABNORMAL [None]
  - RENAL IMPAIRMENT [None]
